FAERS Safety Report 16411019 (Version 1)
Quarter: 2019Q2

REPORT INFORMATION
  Report Type: Spontaneous
  Country: US (occurrence: US)
  Receive Date: 20190610
  Receipt Date: 20190610
  Transmission Date: 20190711
  Serious: No
  Sender: FDA-Public Use
  Company Number: PHEH2019US023418

PATIENT
  Sex: Female
  Weight: 70 kg

DRUGS (1)
  1. ILEVRO [Suspect]
     Active Substance: NEPAFENAC
     Indication: PRODUCT USED FOR UNKNOWN INDICATION
     Route: 065

REACTIONS (4)
  - Eye infection [Unknown]
  - Liquid product physical issue [Unknown]
  - Eye discharge [Unknown]
  - Ocular hyperaemia [Unknown]
